FAERS Safety Report 9190149 (Version 2)
Quarter: 2013Q2

REPORT INFORMATION
  Report Type: Spontaneous
  Country: US (occurrence: US)
  Receive Date: 20130326
  Receipt Date: 20130430
  Transmission Date: 20140414
  Serious: Yes (Death, Other)
  Sender: FDA-Public Use
  Company Number: US-ASTELLAS-2013US003151

PATIENT
  Age: 76 Year
  Sex: Male

DRUGS (1)
  1. XTANDI [Suspect]
     Indication: PROSTATE CANCER METASTATIC
     Dosage: 120 MG, UID/QD
     Route: 048
     Dates: start: 20130201, end: 20130315

REACTIONS (6)
  - Incorrect dose administered [Unknown]
  - Constipation [Unknown]
  - Malignant neoplasm progression [Fatal]
  - Rectal spasm [Unknown]
  - Proctalgia [Unknown]
  - Decreased appetite [Unknown]
